FAERS Safety Report 9108087 (Version 2)
Quarter: 2013Q2

REPORT INFORMATION
  Report Type: Spontaneous
  Country: DE (occurrence: DE)
  Receive Date: 20130221
  Receipt Date: 20130523
  Transmission Date: 20140414
  Serious: Yes (Death, Life-Threatening, Hospitalization, Other)
  Sender: FDA-Public Use
  Company Number: DE-ELI_LILLY_AND_COMPANY-DE201302003940

PATIENT
  Sex: Female

DRUGS (4)
  1. FORSTEO [Suspect]
     Indication: OSTEOPOROSIS
     Dosage: UNK, QD
     Route: 058
     Dates: start: 20110809
  2. STALEVO [Concomitant]
     Indication: PARKINSON^S DISEASE
     Dosage: UNK, UNKNOWN
     Route: 065
  3. DEKRISTOL [Concomitant]
     Dosage: UNK, OTHER
     Route: 065
  4. TOVIAZ [Concomitant]
     Indication: MICTURITION URGENCY
     Dosage: UNK, UNKNOWN
     Route: 065
     Dates: start: 201201

REACTIONS (10)
  - Death [Fatal]
  - Pneumonia [Not Recovered/Not Resolved]
  - Fall [Unknown]
  - Rib fracture [Not Recovered/Not Resolved]
  - Hypopnoea [Not Recovered/Not Resolved]
  - Pulmonary oedema [Not Recovered/Not Resolved]
  - Pulmonary function test decreased [Unknown]
  - Asthenia [Unknown]
  - Dyspnoea [Unknown]
  - Inflammation [Unknown]
